FAERS Safety Report 10073279 (Version 1)
Quarter: 2014Q2

REPORT INFORMATION
  Report Type: Spontaneous
  Country: JP (occurrence: JP)
  Receive Date: 20140411
  Receipt Date: 20140411
  Transmission Date: 20141212
  Serious: Yes (Other)
  Sender: FDA-Public Use
  Company Number: JP-GLAXOSMITHKLINE-B0929704A

PATIENT
  Age: 29 Year
  Sex: Female

DRUGS (3)
  1. SERETIDE (50MCG/500MCG) [Suspect]
     Indication: ASTHMA
     Dosage: 500MCG TWICE PER DAY
     Route: 055
     Dates: start: 201308
  2. SERETIDE (50MCG/250MCG) [Suspect]
     Indication: ASTHMA
     Route: 055
     Dates: start: 201209, end: 201308
  3. ALLEGRA [Concomitant]
     Route: 048

REACTIONS (4)
  - Adrenocortical insufficiency acute [Recovered/Resolved]
  - Secondary adrenocortical insufficiency [Unknown]
  - Malaise [Unknown]
  - Therapeutic response decreased [Unknown]
